FAERS Safety Report 23730080 (Version 3)
Quarter: 2024Q2

REPORT INFORMATION
  Report Type: Report from Study
  Country: US (occurrence: US)
  Receive Date: 20240411
  Receipt Date: 20240517
  Transmission Date: 20240716
  Serious: Yes (Other)
  Sender: FDA-Public Use
  Company Number: US-UNITED THERAPEUTICS-UNT-2024-009752

PATIENT
  Age: 68 Year
  Sex: Female

DRUGS (4)
  1. TREPROSTINIL SODIUM [Suspect]
     Active Substance: TREPROSTINIL SODIUM
     Indication: Pulmonary arterial hypertension
     Dosage: 0.01125 ?G/KG, CONTINUING
     Route: 041
     Dates: start: 20240401
  2. TREPROSTINIL SODIUM [Suspect]
     Active Substance: TREPROSTINIL SODIUM
     Dosage: 0.015 ?G/KG, CONTINUING
     Route: 041
  3. TYVASO [Suspect]
     Active Substance: TREPROSTINIL
     Indication: Pulmonary arterial hypertension
     Dosage: 72 ?G, QID
  4. TYVASO [Suspect]
     Active Substance: TREPROSTINIL
     Dosage: UNK
     Dates: start: 202208, end: 20240401

REACTIONS (15)
  - Haematochezia [Unknown]
  - Bendopnoea [Unknown]
  - Nausea [Unknown]
  - Headache [Unknown]
  - Oedema peripheral [Unknown]
  - Hypoacusis [Unknown]
  - Diarrhoea [Unknown]
  - Pain in extremity [Unknown]
  - Dyspnoea [Recovering/Resolving]
  - Hypertension [Unknown]
  - Stress [Unknown]
  - Dyspnoea exertional [Unknown]
  - Chest pain [Unknown]
  - Fatigue [Unknown]
  - Dizziness [Unknown]

NARRATIVE: CASE EVENT DATE: 20240401
